FAERS Safety Report 16962735 (Version 2)
Quarter: 2019Q4

REPORT INFORMATION
  Report Type: Spontaneous
  Country: BR (occurrence: BR)
  Receive Date: 20191025
  Receipt Date: 20191031
  Transmission Date: 20200122
  Serious: Yes (Other)
  Sender: FDA-Public Use
  Company Number: NVSC2019BR015952

PATIENT
  Sex: Female

DRUGS (1)
  1. CLAXAM [Suspect]
     Active Substance: AMOXICILLIN\CLAVULANATE POTASSIUM
     Indication: SINUSITIS
     Dosage: 1 DF, Q8H
     Route: 065
     Dates: start: 20191013

REACTIONS (5)
  - Sinusitis [Not Recovered/Not Resolved]
  - Pneumonia [Unknown]
  - Disease progression [Not Recovered/Not Resolved]
  - Product dispensing error [Unknown]
  - Drug ineffective [Unknown]
